FAERS Safety Report 20965292 (Version 1)
Quarter: 2022Q2

REPORT INFORMATION
  Report Type: Report from Study
  Country: GB (occurrence: GB)
  Receive Date: 20220616
  Receipt Date: 20220616
  Transmission Date: 20220721
  Serious: Yes (Other)
  Sender: FDA-Public Use
  Company Number: GB-GILEAD-2022-0584916

PATIENT
  Sex: Male

DRUGS (1)
  1. SOFOSBUVIR\VELPATASVIR [Suspect]
     Active Substance: SOFOSBUVIR\VELPATASVIR
     Indication: Product used for unknown indication
     Dosage: 400 MG
     Route: 048
     Dates: start: 20220428

REACTIONS (4)
  - Drug dependence [Not Recovered/Not Resolved]
  - Intentional self-injury [Unknown]
  - Mental disorder [Unknown]
  - Anxiety [Unknown]
